FAERS Safety Report 18223299 (Version 1)
Quarter: 2020Q3

REPORT INFORMATION
  Report Type: Spontaneous
  Country: US (occurrence: US)
  Receive Date: 20200902
  Receipt Date: 20200902
  Transmission Date: 20201103
  Serious: No
  Sender: FDA-Public Use
  Company Number: US-ENDO PHARMACEUTICALS INC-2020-001559

PATIENT
  Age: 19 Year

DRUGS (2)
  1. DELESTROGEN [Suspect]
     Active Substance: ESTRADIOL VALERATE
     Indication: TRANSGENDER HORMONAL THERAPY
     Dosage: 0.5 ML, BIWEEKLY
     Route: 030
     Dates: start: 201911
  2. SPIRONOLACTONE. [Concomitant]
     Active Substance: SPIRONOLACTONE
     Indication: PRODUCT USED FOR UNKNOWN INDICATION

REACTIONS (4)
  - Off label use [Unknown]
  - Product administration error [Recovered/Resolved]
  - Mood altered [Unknown]
  - Product storage error [Unknown]

NARRATIVE: CASE EVENT DATE: 201911
